FAERS Safety Report 6059490-3 (Version None)
Quarter: 2009Q1

REPORT INFORMATION
  Report Type: 
  Country: None (occurrence: None)
  Receive Date: 20090130
  Receipt Date: 20090120
  Transmission Date: 20090719
  Serious: Yes (Hospitalization, Other)
  Sender: FDA-Public Use
  Company Number: US-PFIZER INC-2008059974

PATIENT
  Sex: Female
  Weight: 50.802 kg

DRUGS (36)
  1. XANAX [Suspect]
  2. LIPITOR [Suspect]
  3. LYRICA [Suspect]
     Indication: FIBROMYALGIA
     Dosage: 50 MG, 4X/DAY
     Dates: start: 20080613
  4. LYRICA [Suspect]
     Indication: ARTHRITIS
  5. LYRICA [Suspect]
     Indication: INTERVERTEBRAL DISC DISORDER
  6. ALL OTHER THERAPEUTIC PRODUCTS [Concomitant]
  7. GLUCOSAMINE [Concomitant]
  8. CALCIUM [Concomitant]
     Dosage: 600 MG, 2X/DAY
  9. ACETYLSALICYLIC ACID SRT [Concomitant]
     Dosage: 325 MG, 1X/DAY
  10. BENAZEPRIL HYDROCHLORIDE [Concomitant]
     Indication: HYPERTENSION
     Dosage: 10 MG, 1X/DAY
  11. TRIAZOLAM [Concomitant]
     Indication: RESTLESS LEGS SYNDROME
     Dosage: 0.25 MG, UNK
  12. TRIAZOLAM [Concomitant]
     Indication: BACK PAIN
  13. TRIAZOLAM [Concomitant]
     Indication: ARTHRITIS
  14. TRIAZOLAM [Concomitant]
     Indication: FIBROMYALGIA
  15. DIAZEPAM [Concomitant]
     Indication: ECZEMA
     Dosage: 10 MG, 4X/DAY
  16. DIAZEPAM [Concomitant]
     Indication: DERMATITIS
  17. DIAZEPAM [Concomitant]
     Indication: RASH
  18. DIAZEPAM [Concomitant]
     Indication: URTICARIA
  19. DIPHENOXYLATE HCL AND ATROPINE SULFATE [Concomitant]
     Indication: DIARRHOEA
     Dosage: 1 UNK, 4X/DAY
  20. LEVOTHROID [Concomitant]
     Indication: HYPOTHYROIDISM
  21. CORTISONE [Concomitant]
     Indication: RASH
  22. OMEPRAZOLE [Concomitant]
     Indication: DYSPEPSIA
     Dosage: 20 MG, 2X/DAY
  23. HYDROCODONE BITARTRATE + ACETAMINOPHEN [Concomitant]
  24. ASCORBIC ACID [Concomitant]
     Dosage: 500 MG, 2X/DAY
  25. VITAMIN D [Concomitant]
     Dosage: UNK
  26. VITAMIN D [Concomitant]
  27. AVELOX [Concomitant]
     Indication: BRONCHITIS
     Dosage: 400 MG, 1X/DAY
  28. AVELOX [Concomitant]
     Indication: HYPERSENSITIVITY
  29. AVELOX [Concomitant]
     Indication: OROPHARYNGEAL PAIN
  30. MULTI-VITAMINS [Concomitant]
     Dosage: UNK
  31. FISH OIL [Concomitant]
     Dosage: UNK
  32. LOVAZA [Concomitant]
     Dosage: UNK
  33. COD-LIVER OIL [Concomitant]
     Dosage: UNK
  34. ACIDOPHILUS [Concomitant]
     Dosage: UNK
  35. REGLAN [Concomitant]
     Indication: REFLUX OESOPHAGITIS
     Dosage: 10 MG, 4X/DAY
  36. LAXA-TABS [Concomitant]

REACTIONS (16)
  - ANORECTAL OPERATION [None]
  - BLOOD POTASSIUM DECREASED [None]
  - CARPAL TUNNEL SYNDROME [None]
  - CHILLS [None]
  - DEHYDRATION [None]
  - DERMATITIS [None]
  - DIARRHOEA [None]
  - DYSPNOEA [None]
  - ECZEMA [None]
  - EYE ALLERGY [None]
  - GASTROINTESTINAL SURGERY [None]
  - HYPERSENSITIVITY [None]
  - OEDEMA [None]
  - PRURITUS [None]
  - ROTATOR CUFF REPAIR [None]
  - URTICARIA [None]
